FAERS Safety Report 10912507 (Version 1)
Quarter: 2015Q1

REPORT INFORMATION
  Report Type: Spontaneous
  Country: US (occurrence: None)
  Receive Date: 20150310
  Receipt Date: 20150310
  Transmission Date: 20150721
  Serious: Yes (Other)
  Sender: FDA-Public Use
  Company Number: None

PATIENT
  Age: 73 Year
  Sex: Male
  Weight: 74.84 kg

DRUGS (9)
  1. ALPRAZOLAM. [Suspect]
     Active Substance: ALPRAZOLAM
     Indication: ANXIETY
     Dosage: 2 AT BEDTIME, TAKEN BY MOUTH
     Dates: start: 20150224, end: 20150226
  2. CLONAPIN [Concomitant]
     Active Substance: CLONAZEPAM
  3. TOPROL XL [Concomitant]
     Active Substance: METOPROLOL SUCCINATE
  4. ASPIRIN. [Concomitant]
     Active Substance: ASPIRIN
  5. ALPRAZOLAM. [Suspect]
     Active Substance: ALPRAZOLAM
     Indication: SLEEP DISORDER THERAPY
     Dosage: 2 AT BEDTIME, TAKEN BY MOUTH
     Dates: start: 20150224, end: 20150226
  6. CLOPIDOGREL BISULPHATE [Concomitant]
     Active Substance: CLOPIDOGREL BISULFATE
  7. ALPRAZOLAM. [Concomitant]
     Active Substance: ALPRAZOLAM
  8. PRO-BIOTICS [Concomitant]
  9. PANTOPRAZOLE [Concomitant]
     Active Substance: PANTOPRAZOLE SODIUM

REACTIONS (9)
  - Dyspepsia [None]
  - Dizziness [None]
  - Product taste abnormal [None]
  - Oral mucosal exfoliation [None]
  - Nausea [None]
  - Product substitution issue [None]
  - Abdominal distension [None]
  - Malaise [None]
  - Hypoaesthesia oral [None]

NARRATIVE: CASE EVENT DATE: 20150224
